FAERS Safety Report 13260328 (Version 1)
Quarter: 2017Q1

REPORT INFORMATION
  Report Type: Spontaneous
  Country: US (occurrence: US)
  Receive Date: 20170222
  Receipt Date: 20170222
  Transmission Date: 20170428
  Serious: Yes (Hospitalization)
  Sender: FDA-Public Use
  Company Number: US-BAYER-2017-029874

PATIENT
  Age: 48 Year
  Sex: Female

DRUGS (1)
  1. BETASERON [Suspect]
     Active Substance: INTERFERON BETA-1B
     Dosage: 300 ?G, UNK

REACTIONS (6)
  - Influenza like illness [None]
  - Weight increased [None]
  - Meningitis [None]
  - Encephalopathy [None]
  - Serotonin syndrome [None]
  - Injection site laceration [None]

NARRATIVE: CASE EVENT DATE: 2015
